FAERS Safety Report 6308317-0 (Version None)
Quarter: 2009Q3

REPORT INFORMATION
  Report Type: 
  Country: None (occurrence: None)
  Receive Date: 20090813
  Receipt Date: 20090807
  Transmission Date: 20100115
  Serious: Yes (Hospitalization, Disabling)
  Sender: FDA-Public Use
  Company Number: JP-B.I. PHARMACEUTICALS,INC./RIDGEFIELD-2009-BP-08756NB

PATIENT
  Sex: Male
  Weight: 68 kg

DRUGS (4)
  1. MICARDIS [Suspect]
     Indication: HYPERTENSION
     Dosage: 20 MG
     Route: 048
     Dates: start: 20060527, end: 20090225
  2. AMLODIPINE [Suspect]
     Indication: HYPERTENSION
     Dosage: 5 MG
     Route: 048
     Dates: start: 20090110
  3. LIPOVAS [Suspect]
     Dosage: 5 MG
     Route: 048
     Dates: start: 20090110
  4. ATELEC [Concomitant]
     Indication: HYPERTENSION
     Dosage: 10 MG
     Route: 048
     Dates: start: 20060527, end: 20090109

REACTIONS (2)
  - BLOOD GLUCOSE INCREASED [None]
  - CEREBRAL INFARCTION [None]
